FAERS Safety Report 9590743 (Version 1)
Quarter: 2013Q4

REPORT INFORMATION
  Report Type: Spontaneous
  Country: US (occurrence: US)
  Receive Date: 20131003
  Receipt Date: 20131003
  Transmission Date: 20140711
  Serious: No
  Sender: FDA-Public Use
  Company Number: US-AMGEN-USASP2012075371

PATIENT
  Sex: Female
  Weight: 105.67 kg

DRUGS (4)
  1. ENBREL [Suspect]
     Indication: PSORIATIC ARTHROPATHY
     Dosage: 50 MG, QWK
     Route: 058
  2. MULTIVITAMIN                       /07504101/ [Concomitant]
     Dosage: UNK
  3. CALCIUM D                          /01483701/ [Concomitant]
     Dosage: UNK
  4. PROBIOTICS NOS [Concomitant]
     Dosage: UNK

REACTIONS (1)
  - Diverticulitis [Unknown]
